APPROVED DRUG PRODUCT: HALOG
Active Ingredient: HALCINONIDE
Strength: 0.025%
Dosage Form/Route: OINTMENT;TOPICAL
Application: N018125 | Product #001
Applicant: BRISTOL MYERS SQUIBB
Approved: Approved Prior to Jan 1, 1982 | RLD: Yes | RS: No | Type: DISCN